FAERS Safety Report 9869221 (Version 1)
Quarter: 2014Q1

REPORT INFORMATION
  Report Type: Report from Study
  Country: US (occurrence: US)
  Receive Date: 20140205
  Receipt Date: 20140205
  Transmission Date: 20141002
  Serious: Yes (Other)
  Sender: FDA-Public Use
  Company Number: PHEH2014US002078

PATIENT
  Age: 36 Year
  Sex: Female

DRUGS (2)
  1. TOBI PODHALER [Suspect]
     Indication: CYSTIC FIBROSIS
     Dosage: 28 MG, QID
     Route: 055
     Dates: start: 20131018, end: 20131209
  2. TOBI PODHALER [Suspect]
     Indication: MECONIUM ILEUS

REACTIONS (1)
  - Respiratory tract irritation [Recovering/Resolving]
